FAERS Safety Report 11874627 (Version 1)
Quarter: 2015Q4

REPORT INFORMATION
  Report Type: Spontaneous
  Country: US (occurrence: None)
  Receive Date: 20151228
  Receipt Date: 20151228
  Transmission Date: 20160305
  Serious: Yes (Other)
  Sender: FDA-Public Use
  Company Number: None

PATIENT
  Age: 42 Year
  Sex: Female
  Weight: 110.68 kg

DRUGS (2)
  1. DEXTROAMP-AMPHETAMINE 30MG AUROBINDO PHARM [Suspect]
     Active Substance: AMPHETAMINE ASPARTATE\AMPHETAMINE SULFATE\DEXTROAMPHETAMINE SACCHARATE\DEXTROAMPHETAMINE SULFATE
     Indication: ATTENTION DEFICIT/HYPERACTIVITY DISORDER
     Dosage: 1 PILL TWICE DAILY
     Route: 048
     Dates: start: 20151209, end: 20151219
  2. CPAP [Concomitant]
     Active Substance: DEVICE

REACTIONS (6)
  - Condition aggravated [None]
  - Vision blurred [None]
  - Product quality issue [None]
  - Palpitations [None]
  - Attention deficit/hyperactivity disorder [None]
  - No reaction on previous exposure to drug [None]

NARRATIVE: CASE EVENT DATE: 20151212
